FAERS Safety Report 7865803 (Version 5)
Quarter: 2015Q2

REPORT INFORMATION
  Report Type: Spontaneous
  Country: DK (occurrence: DK)
  Receive Date: 20110322
  Receipt Date: 20150402
  Transmission Date: 20150821
  Serious: Yes (Other)
  Sender: FDA-Public Use
  Company Number: DK-TEVA-271513ISR

PATIENT
  Age: 49 Year
  Sex: Male
  Weight: 85 kg

DRUGS (3)
  1. LAMOTRIGINE. [Suspect]
     Active Substance: LAMOTRIGINE
     Dosage: DOSAGE WERE REDUCED TO 150+0+100 MG DAILY
     Dates: start: 20091214
  2. PLENDIL [Concomitant]
     Active Substance: FELODIPINE
     Indication: HYPERTENSION
     Dosage: 10 MILLIGRAM DAILY;
     Dates: start: 1994
  3. LAMOTRIGINE. [Suspect]
     Active Substance: LAMOTRIGINE
     Indication: EPILEPSY
     Dosage: STRENGTH: 100 MG.
     Dates: start: 2005

REACTIONS (6)
  - Somnolence [Recovered/Resolved]
  - Dyspnoea [Not Recovered/Not Resolved]
  - Product substitution issue [Recovered/Resolved]
  - Chronic obstructive pulmonary disease [Recovered/Resolved]
  - Diarrhoea [Recovered/Resolved]
  - Lethargy [Recovered/Resolved]

NARRATIVE: CASE EVENT DATE: 20050101
